FAERS Safety Report 20147245 (Version 1)
Quarter: 2021Q4

REPORT INFORMATION
  Report Type: Spontaneous
  Country: US (occurrence: US)
  Receive Date: 20211203
  Receipt Date: 20211203
  Transmission Date: 20220303
  Serious: No
  Sender: FDA-Public Use
  Company Number: US-SANOFI-00866364

PATIENT
  Age: 6 Year
  Sex: Female

DRUGS (2)
  1. DUPIXENT [Suspect]
     Active Substance: DUPILUMAB
     Indication: Dermatitis atopic
     Dosage: 300 MG
     Dates: start: 20210930, end: 20210930
  2. DUPIXENT [Suspect]
     Active Substance: DUPILUMAB
     Dosage: UNK
     Dates: start: 20211109

REACTIONS (3)
  - Toothache [Unknown]
  - Oral pain [Unknown]
  - Rash [Unknown]

NARRATIVE: CASE EVENT DATE: 20210101
